FAERS Safety Report 11496909 (Version 3)
Quarter: 2015Q4

REPORT INFORMATION
  Report Type: Spontaneous
  Country: US (occurrence: US)
  Receive Date: 20150911
  Receipt Date: 20151111
  Transmission Date: 20160304
  Serious: No
  Sender: FDA-Public Use
  Company Number: US-JNJFOC-20150805794

PATIENT
  Sex: Female
  Weight: 58.97 kg

DRUGS (6)
  1. XARELTO [Suspect]
     Active Substance: RIVAROXABAN
     Indication: ATRIAL FIBRILLATION
     Dosage: SUPPER MEAL
     Route: 048
     Dates: start: 20150101
  2. XARELTO [Suspect]
     Active Substance: RIVAROXABAN
     Indication: CEREBROVASCULAR ACCIDENT PROPHYLAXIS
     Dosage: SUPPER MEAL
     Route: 048
     Dates: start: 20150101
  3. CALCIUM [Concomitant]
     Active Substance: CALCIUM
     Route: 065
  4. TRIAMCINOLONE [Concomitant]
     Active Substance: TRIAMCINOLONE
     Indication: SKIN DISORDER
     Route: 061
     Dates: start: 20150819
  5. VITAMIN D [Concomitant]
     Active Substance: CHOLECALCIFEROL
     Route: 065
  6. VITAMIN B12 [Concomitant]
     Active Substance: CYANOCOBALAMIN
     Route: 065

REACTIONS (4)
  - Blood blister [Recovering/Resolving]
  - Spider naevus [Not Recovered/Not Resolved]
  - Memory impairment [Unknown]
  - Seborrhoeic keratosis [Not Recovered/Not Resolved]

NARRATIVE: CASE EVENT DATE: 2015
